FAERS Safety Report 7301814-0 (Version None)
Quarter: 2011Q1

REPORT INFORMATION
  Report Type: 
  Country: None (occurrence: None)
  Receive Date: 20110218
  Receipt Date: 20110214
  Transmission Date: 20110831
  Serious: Yes (Hospitalization, Other)
  Sender: FDA-Public Use
  Company Number: B0700432A

PATIENT
  Age: 3 Decade

DRUGS (1)
  1. RELENZA [Suspect]
     Indication: INFLUENZA
     Route: 055

REACTIONS (3)
  - VIRAL MYOCARDITIS [None]
  - PRODUCT QUALITY ISSUE [None]
  - INFLUENZA [None]
